FAERS Safety Report 7417434-3 (Version None)
Quarter: 2011Q2

REPORT INFORMATION
  Report Type: 
  Country: None (occurrence: None)
  Receive Date: 20110415
  Receipt Date: 20110329
  Transmission Date: 20111010
  Serious: Yes (Hospitalization, Other)
  Sender: FDA-Public Use
  Company Number: US-PFIZER INC-2010003348

PATIENT
  Sex: Female
  Weight: 106 kg

DRUGS (7)
  1. HALOPERIDOL [Suspect]
     Dosage: 7.5 TO 12.5 MG, 1X/DAY
     Route: 048
  2. FOLIC ACID [Concomitant]
     Indication: PROPHYLAXIS OF NEURAL TUBE DEFECT
     Dosage: 5 MG, 1X/DAY
     Route: 048
  3. ZOLOFT [Interacting]
     Indication: ANTIDEPRESSANT THERAPY
     Dosage: 50 MG, 1X/DAY
  4. HALOPERIDOL [Suspect]
     Dosage: 5 MG, 1X/DAY
     Route: 048
  5. EFFEXOR XR [Interacting]
     Dosage: 300 MG, 1X/DAY
     Route: 048
  6. QUETIAPINE [Interacting]
     Indication: PSYCHOTIC DISORDER
     Dosage: 1 IN 1 DAY
     Route: 048
  7. ELEVIT PRONATAL [Concomitant]
     Indication: VITAMIN SUPPLEMENTATION
     Dosage: 1 IN 1 DAY

REACTIONS (5)
  - POSTPARTUM DEPRESSION [None]
  - PSYCHOTIC DISORDER [None]
  - HYPEREMESIS GRAVIDARUM [None]
  - WEIGHT DECREASED [None]
  - DRUG INTERACTION [None]
